FAERS Safety Report 6942602-4 (Version None)
Quarter: 2010Q3

REPORT INFORMATION
  Report Type: 
  Country: None (occurrence: None)
  Receive Date: 20100826
  Receipt Date: 20100818
  Transmission Date: 20110219
  Serious: Yes (Other)
  Sender: FDA-Public Use
  Company Number: US-BAYER-201019284BCC

PATIENT
  Age: 79 Year
  Sex: Male
  Weight: 91 kg

DRUGS (4)
  1. MILK OF MAGNESIA TAB [Suspect]
     Indication: CONSTIPATION
     Dosage: CONSUMER INGESTED A SWIG OF THE PRODUCT DAILY
     Route: 048
  2. LIPITOR [Concomitant]
  3. ATENOLOL [Concomitant]
  4. INSULIN [Concomitant]

REACTIONS (1)
  - BLOOD GLUCOSE INCREASED [None]
